FAERS Safety Report 25132023 (Version 1)
Quarter: 2025Q1

REPORT INFORMATION
  Report Type: Spontaneous
  Country: US (occurrence: US)
  Receive Date: 20250327
  Receipt Date: 20250327
  Transmission Date: 20250409
  Serious: No
  Sender: HETERO
  Company Number: US-HETERO-HET2025US01463

PATIENT
  Sex: Female

DRUGS (1)
  1. DIMETHYL FUMARATE [Suspect]
     Active Substance: DIMETHYL FUMARATE
     Indication: Product used for unknown indication
     Route: 065

REACTIONS (10)
  - Burning sensation [Unknown]
  - Drug intolerance [Unknown]
  - Eye swelling [Unknown]
  - Swelling face [Unknown]
  - Swelling [Unknown]
  - Skin swelling [Unknown]
  - Pruritus [Unknown]
  - Tongue pruritus [Unknown]
  - Product substitution issue [Unknown]
  - Therapeutic response decreased [Unknown]
